FAERS Safety Report 12942839 (Version 1)
Quarter: 2016Q4

REPORT INFORMATION
  Report Type: Spontaneous
  Country: US (occurrence: US)
  Receive Date: 20161115
  Receipt Date: 20161115
  Transmission Date: 20170207
  Serious: No
  Sender: FDA-Public Use
  Company Number: US-BAUSCH-BL-2016-013293

PATIENT
  Sex: Female

DRUGS (6)
  1. LACTULOSE. [Concomitant]
     Active Substance: LACTULOSE
     Indication: HEPATIC ENCEPHALOPATHY
     Dosage: 3 TABLESPOONS
     Route: 065
  2. METRONIDAZOLE. [Suspect]
     Active Substance: METRONIDAZOLE
     Indication: HEPATIC ENCEPHALOPATHY
     Route: 065
  3. XIFAXAN [Concomitant]
     Active Substance: RIFAXIMIN
     Indication: HEPATIC FAILURE
     Route: 048
  4. XIFAXAN [Concomitant]
     Active Substance: RIFAXIMIN
     Indication: HEPATIC CIRRHOSIS
  5. METRONIDAZOLE. [Suspect]
     Active Substance: METRONIDAZOLE
     Indication: COMA
  6. ACARBOSE. [Concomitant]
     Active Substance: ACARBOSE
     Indication: HEPATIC ENCEPHALOPATHY
     Route: 065

REACTIONS (1)
  - Off label use [Unknown]
